FAERS Safety Report 14731552 (Version 1)
Quarter: 2018Q2

REPORT INFORMATION
  Report Type: Spontaneous
  Country: IT (occurrence: IT)
  Receive Date: 20180407
  Receipt Date: 20180407
  Transmission Date: 20180711
  Serious: Yes (Hospitalization, Other)
  Sender: FDA-Public Use
  Company Number: IT-AUROBINDO-AUR-APL-2018-018425

PATIENT
  Age: 39 Year
  Sex: Male

DRUGS (3)
  1. LINEZOLID. [Suspect]
     Active Substance: LINEZOLID
     Indication: ANTIBIOTIC THERAPY
     Dosage: 600 MILLIGRAM, TWO TIMES A DAY
     Route: 065
  2. METHADONE [Interacting]
     Active Substance: METHADONE HYDROCHLORIDE
     Indication: DRUG WITHDRAWAL MAINTENANCE THERAPY
     Dosage: 40 MILLIGRAM, ONCE A DAY
     Route: 065
  3. CLINDAMYCIN. [Suspect]
     Active Substance: CLINDAMYCIN
     Indication: ANTIBIOTIC THERAPY
     Dosage: 600 MILLIGRAM, FOUR TIMES/DAY
     Route: 042

REACTIONS (6)
  - Blood pressure fluctuation [Recovered/Resolved]
  - Pulse abnormal [Recovered/Resolved]
  - Serotonin syndrome [Recovered/Resolved]
  - White blood cell count increased [Recovered/Resolved]
  - Abdominal tenderness [Recovered/Resolved]
  - C-reactive protein increased [Recovered/Resolved]
